FAERS Safety Report 4966772-2 (Version None)
Quarter: 2006Q2

REPORT INFORMATION
  Report Type: 
  Country: None (occurrence: None)
  Receive Date: 20060407
  Receipt Date: 20051223
  Transmission Date: 20061013
  Serious: Yes (Hospitalization, Disabling, Other)
  Sender: FDA-Public Use
  Company Number: US-MERCK-0512USA03768

PATIENT
  Age: 61 Year
  Sex: Male
  Weight: 92 kg

DRUGS (12)
  1. VIOXX [Suspect]
     Indication: ARTHRITIS
     Route: 048
     Dates: start: 20020912, end: 20040101
  2. VIOXX [Suspect]
     Indication: BACK PAIN
     Route: 048
     Dates: start: 20020912, end: 20040101
  3. SAW PALMETTO STANDARDIZED EXTRACT [Concomitant]
     Route: 065
  4. PREVACID [Concomitant]
     Route: 065
  5. NASACORT AQ [Concomitant]
     Route: 065
  6. NIACIN [Concomitant]
     Indication: DYSLIPIDAEMIA
     Route: 065
  7. ASPIRIN [Concomitant]
     Route: 065
  8. LOSARTAN POTASSIUM [Concomitant]
     Route: 065
  9. TYLENOL (CAPLET) [Concomitant]
     Route: 065
  10. ZOCOR [Concomitant]
     Route: 065
  11. COZAAR [Concomitant]
     Route: 048
  12. METOPROLOL [Concomitant]
     Route: 065

REACTIONS (6)
  - CORONARY ARTERY DISEASE [None]
  - FLANK PAIN [None]
  - MYOCARDIAL INFARCTION [None]
  - NON-CARDIAC CHEST PAIN [None]
  - PLEURITIC PAIN [None]
  - TENSION HEADACHE [None]
